FAERS Safety Report 23348607 (Version 2)
Quarter: 2024Q1

REPORT INFORMATION
  Report Type: Spontaneous
  Country: JP (occurrence: JP)
  Receive Date: 20231229
  Receipt Date: 20240107
  Transmission Date: 20240410
  Serious: No
  Sender: FDA-Public Use
  Company Number: JP-KYOWAKIRIN-2023KK020115

PATIENT

DRUGS (1)
  1. ROMIPLOSTIM [Suspect]
     Active Substance: ROMIPLOSTIM
     Indication: Product used for unknown indication
     Dosage: UNK
     Route: 058

REACTIONS (1)
  - No adverse event [Unknown]
